FAERS Safety Report 24698230 (Version 1)
Quarter: 2024Q4

REPORT INFORMATION
  Report Type: Spontaneous
  Country: US (occurrence: US)
  Receive Date: 20241204
  Receipt Date: 20241204
  Transmission Date: 20250115
  Serious: Yes (Hospitalization)
  Sender: INCYTE
  Company Number: US-INCYTE CORPORATION-2024IN012677

PATIENT

DRUGS (1)
  1. OPZELURA [Suspect]
     Active Substance: RUXOLITINIB PHOSPHATE
     Dosage: UNK, APPLY A THIN LAYER TO AFFECTED AREA(S) ON HANDS TWICE DAILY AS NEEDED
     Route: 065
     Dates: start: 202408

REACTIONS (1)
  - Cerebral disorder [Unknown]
